FAERS Safety Report 6094784-7 (Version None)
Quarter: 2009Q1

REPORT INFORMATION
  Report Type: 
  Country: None (occurrence: None)
  Receive Date: 20090225
  Receipt Date: 20090219
  Transmission Date: 20090719
  Serious: Yes (Hospitalization)
  Sender: FDA-Public Use
  Company Number: US025261

PATIENT
  Age: 69 Year
  Sex: Male
  Weight: 91.173 kg

DRUGS (4)
  1. TREANDA [Suspect]
     Indication: CHRONIC LYMPHOCYTIC LEUKAEMIA
     Dosage: 200 MG DAY 1 AND DAY 2 EVERY 29 DAYS INTRAVENOUS
     Route: 042
     Dates: start: 20081113, end: 20081114
  2. TREANDA [Suspect]
     Indication: CHRONIC LYMPHOCYTIC LEUKAEMIA
     Dosage: 200 MG DAY 1 AND DAY 2 EVERY 28 DAYS INTRAVENOUS
     Route: 042
     Dates: start: 20081217, end: 20081218
  3. RITUXAN [Concomitant]
  4. NEULASTA [Concomitant]

REACTIONS (1)
  - HAEMOLYTIC ANAEMIA [None]
